FAERS Safety Report 17064822 (Version 2)
Quarter: 2020Q4

REPORT INFORMATION
  Report Type: Spontaneous
  Country: US (occurrence: US)
  Receive Date: 20191122
  Receipt Date: 20201006
  Transmission Date: 20210113
  Serious: No
  Sender: FDA-Public Use
  Company Number: NVSC2019US043384

PATIENT
  Sex: Male

DRUGS (1)
  1. PROMACTA [Suspect]
     Active Substance: ELTROMBOPAG OLAMINE
     Indication: IMMUNE THROMBOCYTOPENIA
     Dosage: UNK (ONCE DAILY)
     Route: 048

REACTIONS (3)
  - Labelled drug-food interaction medication error [Unknown]
  - Wrong technique in product usage process [Unknown]
  - Visual impairment [Unknown]
